FAERS Safety Report 24929374 (Version 1)
Quarter: 2025Q1

REPORT INFORMATION
  Report Type: Report from Study
  Country: ZA (occurrence: ZA)
  Receive Date: 20250205
  Receipt Date: 20250205
  Transmission Date: 20250409
  Serious: Yes (Other)
  Sender: ALEXION PHARMACEUTICALS
  Company Number: ZA-AstraZeneca-CH-00791595A

PATIENT
  Age: 73 Year

DRUGS (8)
  1. BUDESONIDE\FORMOTEROL [Suspect]
     Active Substance: BUDESONIDE\FORMOTEROL
     Indication: Asthma
  2. BISOPROLOL [Concomitant]
     Active Substance: BISOPROLOL
     Indication: Cardiac disorder
  3. RIVAROXABAN [Concomitant]
     Active Substance: RIVAROXABAN
     Indication: Anticoagulant therapy
  4. Stilpane [Concomitant]
     Indication: Pain
  5. ETORICOXIB [Concomitant]
     Active Substance: ETORICOXIB
  6. ETORICOXIB [Concomitant]
     Active Substance: ETORICOXIB
  7. Broncol [Concomitant]
  8. PREGABALIN [Concomitant]
     Active Substance: PREGABALIN
     Indication: Epilepsy

REACTIONS (8)
  - Bone pain [Recovered/Resolved]
  - Gait disturbance [Recovered/Resolved]
  - Illness [Unknown]
  - Arthritis [Unknown]
  - Malaise [Unknown]
  - Diabetes mellitus [Unknown]
  - Blood cholesterol [Unknown]
  - Pulmonary embolism [Unknown]
